FAERS Safety Report 10410341 (Version 1)
Quarter: 2014Q3

REPORT INFORMATION
  Report Type: Spontaneous
  Country: CA (occurrence: CA)
  Receive Date: 20140826
  Receipt Date: 20140826
  Transmission Date: 20150326
  Serious: Yes (Hospitalization)
  Sender: FDA-Public Use
  Company Number: CA-PFIZER INC-2014231354

PATIENT
  Age: 53 Year
  Sex: Male
  Weight: 91 kg

DRUGS (14)
  1. DIAMICRON [Concomitant]
     Active Substance: GLICLAZIDE
     Dosage: UNK
  2. SUTENT [Suspect]
     Active Substance: SUNITINIB MALATE
     Dosage: 50 MG, 1X/DAY (1 EVERY 1 DAY, THERAPY DURATION OF 235 DAYS)
     Route: 048
  3. METOPROLOL [Suspect]
     Active Substance: METOPROLOL
     Dosage: UNK
  4. LISINOPRIL. [Concomitant]
     Active Substance: LISINOPRIL
     Dosage: UNK
  5. JANUVIA [Suspect]
     Active Substance: SITAGLIPTIN PHOSPHATE
     Dosage: UNK
  6. AVANDAMET [Suspect]
     Active Substance: METFORMIN HYDROCHLORIDE\ROSIGLITAZONE MALEATE
     Dosage: UNK
  7. NEXAVAR [Suspect]
     Active Substance: SORAFENIB
     Dosage: 200 MG, 2X/DAY (2 EVERY 1 DAY)
  8. AVALIDE [Concomitant]
     Active Substance: HYDROCHLOROTHIAZIDE\IRBESARTAN
     Dosage: UNK
  9. LEVEMIR PENFILL [Suspect]
     Active Substance: INSULIN DETEMIR
     Dosage: UNK, SOLUTION SUBCUTANEOUS
     Route: 058
  10. GLICLAZIDE MR [Suspect]
     Active Substance: GLICLAZIDE
     Dosage: UNK, EXTENDED RELEASE
  11. ASA [Concomitant]
     Active Substance: ASPIRIN
     Dosage: UNK
  12. SUTENT [Suspect]
     Active Substance: SUNITINIB MALATE
     Dosage: 50 MG, 1X/DAY (1 EVERY 1 DAY, THERAPY DURATION OF 4 WEEKS)
  13. NEXAVAR [Suspect]
     Active Substance: SORAFENIB
     Dosage: 400 MG, 2X/DAY (2 EVERY 1 DAY, THERAPY DURATION OF 252 DAYS)
     Route: 048
  14. CADUET [Concomitant]
     Active Substance: AMLODIPINE BESYLATE\ATORVASTATIN CALCIUM
     Dosage: UNK

REACTIONS (3)
  - Hypoglycaemia [Unknown]
  - Metabolic acidosis [Unknown]
  - Vomiting projectile [Unknown]
